FAERS Safety Report 23309300 (Version 1)
Quarter: 2023Q4

REPORT INFORMATION
  Report Type: Spontaneous
  Country: US (occurrence: US)
  Receive Date: 20231218
  Receipt Date: 20231218
  Transmission Date: 20240110
  Serious: No
  Sender: FDA-Public Use
  Company Number: US-PFIZER INC-202300439645

PATIENT
  Age: 56 Year
  Sex: Female
  Weight: 96.16 kg

DRUGS (2)
  1. IBRANCE [Suspect]
     Active Substance: PALBOCICLIB
     Indication: Breast cancer metastatic
     Dosage: 125MG FOR 21 DAYS ON AND 7 DAYS OFF
     Route: 048
     Dates: start: 2019
  2. LETROZOLE [Concomitant]
     Active Substance: LETROZOLE
     Dosage: 2.5 MG, DAILY
     Route: 048
     Dates: start: 2019

REACTIONS (2)
  - Diarrhoea [Unknown]
  - Fatigue [Not Recovered/Not Resolved]
